FAERS Safety Report 24933724 (Version 1)
Quarter: 2025Q1

REPORT INFORMATION
  Report Type: Report from Study
  Country: US (occurrence: US)
  Receive Date: 20250206
  Receipt Date: 20250206
  Transmission Date: 20250409
  Serious: Yes (Hospitalization)
  Sender: EXELIXIS
  Company Number: US-EXELIXIS-CABO-24073692

PATIENT
  Sex: Female
  Weight: 83.9 kg

DRUGS (19)
  1. CABOMETYX [Suspect]
     Active Substance: CABOZANTINIB S-MALATE
     Indication: Renal cell carcinoma
     Dosage: 20 MG, QD
     Route: 048
  2. CABOMETYX [Suspect]
     Active Substance: CABOZANTINIB S-MALATE
     Indication: Metastases to lung
  3. CABOMETYX [Suspect]
     Active Substance: CABOZANTINIB S-MALATE
     Indication: Metastases to bone
  4. CABOMETYX [Suspect]
     Active Substance: CABOZANTINIB S-MALATE
     Indication: Metastases to liver
  5. INLYTA [Suspect]
     Active Substance: AXITINIB
     Indication: Renal cell carcinoma
     Dates: start: 20231127
  6. INLYTA [Suspect]
     Active Substance: AXITINIB
     Indication: Metastases to lung
  7. INLYTA [Suspect]
     Active Substance: AXITINIB
     Indication: Metastases to liver
  8. INLYTA [Suspect]
     Active Substance: AXITINIB
     Indication: Metastases to bone
  9. ASPIRIN [Concomitant]
     Active Substance: ASPIRIN
  10. VITAMINS [Concomitant]
     Active Substance: VITAMINS
  11. COENZYME Q10 [Concomitant]
     Active Substance: DIETARY SUPPLEMENT\UBIDECARENONE
  12. DEMANNOSE [Concomitant]
     Active Substance: DEMANNOSE
  13. FAMOTIDINE [Concomitant]
     Active Substance: FAMOTIDINE
  14. FISH OIL [Concomitant]
     Active Substance: FISH OIL
  15. IMODIUM [Concomitant]
     Active Substance: LOPERAMIDE HYDROCHLORIDE
  16. LOSARTAN [Concomitant]
     Active Substance: LOSARTAN
  17. MAGNESIUM [Concomitant]
     Active Substance: MAGNESIUM
  18. HERBALS\TURMERIC [Concomitant]
     Active Substance: HERBALS\TURMERIC
  19. VITAMIN D3 [Concomitant]
     Active Substance: CHOLECALCIFEROL

REACTIONS (2)
  - Metastases to spine [Recovering/Resolving]
  - Cancer pain [Recovering/Resolving]
